FAERS Safety Report 9511722 (Version 2)
Quarter: 2013Q3

REPORT INFORMATION
  Report Type: Spontaneous
  Country: US (occurrence: US)
  Receive Date: 20130910
  Receipt Date: 20130910
  Transmission Date: 20140515
  Serious: Yes (Other)
  Sender: FDA-Public Use
  Company Number: US-INCYTE CORPORATION-2013IN001658

PATIENT
  Age: 49 Year
  Sex: Male
  Weight: 85.5 kg

DRUGS (5)
  1. JAKAFI [Suspect]
     Indication: MYELOFIBROSIS
     Dosage: 20 MG, BID
     Route: 048
     Dates: start: 20130506, end: 20130703
  2. JAKAFI [Suspect]
     Dosage: UNK
  3. VITAMIN B12 [Concomitant]
  4. FENOFIBRATE [Concomitant]
  5. ZOFRAN [Concomitant]

REACTIONS (4)
  - Splenomegaly [Not Recovered/Not Resolved]
  - Fatigue [Not Recovered/Not Resolved]
  - Blood creatinine increased [Not Recovered/Not Resolved]
  - Drug ineffective [Not Recovered/Not Resolved]
